FAERS Safety Report 4474215-0 (Version None)
Quarter: 2004Q4

REPORT INFORMATION
  Report Type: 
  Country: None (occurrence: None)
  Receive Date: 20041008
  Receipt Date: 20040924
  Transmission Date: 20050328
  Serious: Yes (Hospitalization)
  Sender: FDA-Public Use
  Company Number: S04-CAN-06395-01

PATIENT
  Age: 84 Year
  Sex: Male

DRUGS (3)
  1. EBIXA (MEMANTINE) [Suspect]
     Indication: DEMENTIA
     Dosage: 10 MG BID PO
     Route: 048
     Dates: start: 20040129, end: 20040901
  2. SINEMET [Concomitant]
  3. EXELON [Concomitant]

REACTIONS (2)
  - BRAIN NEOPLASM [None]
  - BRAIN OEDEMA [None]
